FAERS Safety Report 9990407 (Version 1)
Quarter: 2014Q1

REPORT INFORMATION
  Report Type: Report from Study
  Country: DE (occurrence: DE)
  Receive Date: 20140310
  Receipt Date: 20140310
  Transmission Date: 20141002
  Serious: Yes (Hospitalization)
  Sender: FDA-Public Use
  Company Number: DE-AMGEN-DEUCT2014015975

PATIENT
  Age: 60 Year
  Sex: Female
  Weight: 77 kg

DRUGS (3)
  1. DENOSUMAB [Suspect]
     Indication: METASTASES TO BONE
     Dosage: 120 MG, QD
     Route: 058
     Dates: start: 20131108
  2. TYKERB [Suspect]
     Indication: BREAST CANCER METASTATIC
     Dosage: 1000 MG, QD
     Route: 048
     Dates: start: 20131108, end: 20140228
  3. TAXOL [Suspect]
     Indication: BREAST CANCER METASTATIC
     Dosage: 125 MG, QWK
     Route: 042
     Dates: start: 20131108

REACTIONS (1)
  - Dizziness [Not Recovered/Not Resolved]
